FAERS Safety Report 5674370-0 (Version None)
Quarter: 2008Q2

REPORT INFORMATION
  Report Type: 
  Country: None (occurrence: None)
  Receive Date: 20080303
  Receipt Date: 20071116
  Transmission Date: 20081010
  Serious: Yes (Other)
  Sender: FDA-Public Use
  Company Number: 2007S1011965

PATIENT
  Age: 37 Year
  Sex: Male

DRUGS (2)
  1. AMNESTEEM [Suspect]
     Dosage: 40 MG;TWICE A DAY;ORAL
     Route: 048
     Dates: start: 20070726, end: 20071116
  2. TESTOSTERONE [Suspect]

REACTIONS (4)
  - ADVERSE EVENT [None]
  - ANXIETY [None]
  - PALPITATIONS [None]
  - PARAESTHESIA [None]
